FAERS Safety Report 7882968-4 (Version None)
Quarter: 2011Q4

REPORT INFORMATION
  Report Type: 
  Country: None (occurrence: None)
  Receive Date: 20111101
  Receipt Date: 20111026
  Transmission Date: 20120403
  Serious: Yes (Other)
  Sender: FDA-Public Use
  Company Number: PHEH2010US03494

PATIENT
  Sex: Male

DRUGS (26)
  1. PEPCID [Concomitant]
  2. ASPIRIN [Concomitant]
  3. LUNESTA [Concomitant]
  4. LIPITOR [Concomitant]
  5. NEULASTA [Concomitant]
     Dosage: 6 MG
     Route: 058
  6. METOPROLOL TARTRATE [Concomitant]
  7. TAXOTERE [Concomitant]
     Dosage: 140 MG,
  8. PREDNISONE [Concomitant]
  9. AMOXICILLIN [Concomitant]
  10. FLEXERIL [Concomitant]
  11. SIMVASTATIN [Concomitant]
  12. WARFARIN [Concomitant]
  13. ALOXI [Concomitant]
     Dosage: 0.25 MG,
  14. DICLOFENAC POTASSIUM [Concomitant]
  15. PERIDEX [Concomitant]
  16. PERCOCET [Concomitant]
  17. DARVOCET-N 50 [Concomitant]
  18. DOLASETRON [Concomitant]
  19. CHEMOTHERAPEUTICS [Concomitant]
  20. LUPRON [Concomitant]
     Dates: start: 20100420
  21. TRELSTAR [Concomitant]
  22. PEN-VEE K [Concomitant]
  23. ZOMETA [Suspect]
     Dosage: 4 MG, MONTHLY
     Dates: start: 20060301, end: 20090301
  24. FOLTX [Concomitant]
  25. TORADOL [Concomitant]
  26. RADIATION THERAPY [Concomitant]

REACTIONS (41)
  - PULMONARY EMBOLISM [None]
  - HILAR LYMPHADENOPATHY [None]
  - LEFT ATRIAL DILATATION [None]
  - DYSLIPIDAEMIA [None]
  - MUSCLE SPASMS [None]
  - INJURY [None]
  - OSTEOARTHRITIS [None]
  - PATHOLOGICAL FRACTURE [None]
  - MUSCULOSKELETAL PAIN [None]
  - ERECTILE DYSFUNCTION [None]
  - VARICOSE VEIN [None]
  - SUBCUTANEOUS HAEMATOMA [None]
  - BLOOD ALKALINE PHOSPHATASE INCREASED [None]
  - AORTIC ARTERIOSCLEROSIS [None]
  - HAEMORRHOIDS [None]
  - HYPERHOMOCYSTEINAEMIA [None]
  - OSTEONECROSIS OF JAW [None]
  - PARAESTHESIA [None]
  - PAIN IN EXTREMITY [None]
  - ROTATOR CUFF SYNDROME [None]
  - MYOCARDIAL INFARCTION [None]
  - ACTINIC KERATOSIS [None]
  - BACK PAIN [None]
  - OEDEMA PERIPHERAL [None]
  - CHEST PAIN [None]
  - DYSPNOEA [None]
  - MITRAL VALVE INCOMPETENCE [None]
  - HYPERCHOLESTEROLAEMIA [None]
  - DISABILITY [None]
  - ANXIETY [None]
  - ANHEDONIA [None]
  - SKIN CANCER [None]
  - PAIN [None]
  - INTERVERTEBRAL DISC DEGENERATION [None]
  - INTERVERTEBRAL DISC PROTRUSION [None]
  - NEUTROPENIA [None]
  - TRICUSPID VALVE INCOMPETENCE [None]
  - SPINAL COLUMN STENOSIS [None]
  - LYMPHADENOPATHY MEDIASTINAL [None]
  - NEOPLASM MALIGNANT [None]
  - ANAEMIA [None]
